FAERS Safety Report 9227066 (Version 1)
Quarter: 2013Q2

REPORT INFORMATION
  Report Type: Spontaneous
  Country: ZA (occurrence: None)
  Receive Date: 20130410
  Receipt Date: 20130410
  Transmission Date: 20140414
  Serious: Yes (Hospitalization, Other)
  Sender: FDA-Public Use
  Company Number: SYM-2013-02272

PATIENT
  Age: 48 Year
  Sex: 0

DRUGS (3)
  1. ZYBAN [Suspect]
     Indication: SMOKING CESSATION THERAPY
     Dosage: 150 MG , 2 IN 1 D, ORAL
     Route: 048
     Dates: start: 2003, end: 20031007
  2. PROMETHAZINE (PROMETHAZINE) (PROMETHAZINE) [Concomitant]
  3. CHLORPHENAMINE MALEATE [Suspect]

REACTIONS (1)
  - Epilepsy [None]
